FAERS Safety Report 7362260-7 (Version None)
Quarter: 2011Q1

REPORT INFORMATION
  Report Type: 
  Country: None (occurrence: None)
  Receive Date: 20110318
  Receipt Date: 20110314
  Transmission Date: 20110831
  Serious: Yes (Death)
  Sender: FDA-Public Use
  Company Number: PHHY2011US20333

PATIENT
  Age: 88 Year
  Sex: Male

DRUGS (1)
  1. EXELON [Suspect]
     Dosage: 9.5 MG, QD
     Route: 062

REACTIONS (2)
  - NECK INJURY [None]
  - ACCIDENT [None]
